FAERS Safety Report 9065867 (Version 1)
Quarter: 2013Q1

REPORT INFORMATION
  Report Type: Spontaneous
  Country: PR (occurrence: PR)
  Receive Date: 20130131
  Receipt Date: 20130131
  Transmission Date: 20140127
  Serious: No
  Sender: FDA-Public Use
  Company Number: PR-ABBOTT-12P-131-0970995-00

PATIENT
  Age: 64 Year
  Sex: Female
  Weight: 67.65 kg

DRUGS (3)
  1. HUMIRA [Suspect]
     Indication: REITER^S SYNDROME
     Route: 058
     Dates: start: 20120906, end: 20121004
  2. PRILOSEC [Concomitant]
     Indication: HIATUS HERNIA
     Route: 048
  3. CARAFATE [Concomitant]
     Indication: HIATUS HERNIA
     Dosage: 10ML ONCE OR TWICE DAILY
     Route: 048

REACTIONS (5)
  - Cough [Recovered/Resolved]
  - Ocular hyperaemia [Not Recovered/Not Resolved]
  - Cough [Recovered/Resolved]
  - Urinary tract infection [Unknown]
  - Tooth abscess [Unknown]
